FAERS Safety Report 18740327 (Version 1)
Quarter: 2021Q1

REPORT INFORMATION
  Report Type: Spontaneous
  Country: US (occurrence: US)
  Receive Date: 20210114
  Receipt Date: 20210114
  Transmission Date: 20210419
  Serious: Yes (Death, Hospitalization)
  Sender: FDA-Public Use
  Company Number: US-MYLANLABS-2021M1001675

PATIENT
  Age: 62 Year
  Sex: Female

DRUGS (1)
  1. METFORMIN [Suspect]
     Active Substance: METFORMIN HYDROCHLORIDE
     Indication: PRODUCT USED FOR UNKNOWN INDICATION
     Dosage: 270 GRAM, TOTAL
     Route: 048

REACTIONS (8)
  - Intentional overdose [Fatal]
  - Hyperglycaemia [Recovering/Resolving]
  - Hypotension [Not Recovered/Not Resolved]
  - Vomiting [Unknown]
  - Metabolic acidosis [Not Recovered/Not Resolved]
  - Cardiac arrest [Fatal]
  - Completed suicide [Fatal]
  - Lactic acidosis [Not Recovered/Not Resolved]
